FAERS Safety Report 23338120 (Version 6)
Quarter: 2024Q2

REPORT INFORMATION
  Report Type: Report from Study
  Country: JP (occurrence: JP)
  Receive Date: 20231226
  Receipt Date: 20240411
  Transmission Date: 20240716
  Serious: Yes (Other)
  Sender: FDA-Public Use
  Company Number: JP-ALNYLAM PHARMACEUTICALS, INC.-ALN-2023-001233

PATIENT

DRUGS (7)
  1. AMVUTTRA [Suspect]
     Active Substance: VUTRISIRAN
     Indication: Hereditary neuropathic amyloidosis
     Dosage: 25 MILLIGRAM, ONCE EVERY 3 MONTHS
     Route: 058
     Dates: start: 20230309, end: 20240216
  2. SPIRONOLACTONE [Concomitant]
     Active Substance: SPIRONOLACTONE
     Indication: Hereditary neuropathic amyloidosis
     Dosage: 25 MILLIGRAM
     Route: 048
  3. MIYA-BM [Concomitant]
     Active Substance: CLOSTRIDIUM BUTYRICUM SPORES STRAIN M-55
     Indication: Product used for unknown indication
     Dosage: 1 DOSAGE FORM EVERYDAY
     Route: 048
  4. ALBUMIN TANNATE [Concomitant]
     Active Substance: ALBUMIN TANNATE
     Indication: Product used for unknown indication
     Dosage: 1 DOSAGE FORM EVERYDAY
     Route: 048
  5. FEBUXOSTAT [Concomitant]
     Active Substance: FEBUXOSTAT
     Indication: Product used for unknown indication
     Dosage: 1 DOSAGE FORM EVERYDAY
     Route: 048
  6. METHYLCOBALAMIN [Concomitant]
     Active Substance: METHYLCOBALAMIN
     Indication: Product used for unknown indication
     Dosage: 1 DOSAGE FORM EVERYDAY
     Route: 048
  7. VITAMINS [Concomitant]
     Active Substance: VITAMINS
     Indication: Vitamin supplementation
     Dosage: 1 GRAM, QD
     Route: 048
     Dates: start: 20230309

REACTIONS (21)
  - Cataract [Not Recovered/Not Resolved]
  - Tachycardia [Unknown]
  - Impaired gastric emptying [Unknown]
  - Arrhythmia [Recovering/Resolving]
  - Limb discomfort [Unknown]
  - Oropharyngeal discomfort [Recovered/Resolved]
  - Epistaxis [Recovered/Resolved]
  - Haemorrhoidal haemorrhage [Recovering/Resolving]
  - Dizziness postural [Unknown]
  - Nocturia [Not Recovered/Not Resolved]
  - Groin pain [Recovered/Resolved]
  - Dizziness [Recovering/Resolving]
  - Blood pressure decreased [Unknown]
  - Pyrexia [Recovered/Resolved]
  - Hypoaesthesia [Not Recovered/Not Resolved]
  - Epistaxis [Recovered/Resolved]
  - Hypoacusis [Unknown]
  - Night blindness [Not Recovered/Not Resolved]
  - Diarrhoea [Not Recovered/Not Resolved]
  - Arthralgia [Unknown]
  - Fatigue [Unknown]

NARRATIVE: CASE EVENT DATE: 20230407
